FAERS Safety Report 25080182 (Version 1)
Quarter: 2025Q1

REPORT INFORMATION
  Report Type: Spontaneous
  Country: US (occurrence: US)
  Receive Date: 20250314
  Receipt Date: 20250314
  Transmission Date: 20250409
  Serious: No
  Sender: CIPHER
  Company Number: US-PARAPRO LLC-2024PP000006

PATIENT
  Age: 82 Year
  Sex: Male

DRUGS (1)
  1. SPINOSAD [Suspect]
     Active Substance: SPINOSAD
     Indication: Acarodermatitis
     Route: 061
     Dates: start: 2024

REACTIONS (1)
  - Drug ineffective [Unknown]

NARRATIVE: CASE EVENT DATE: 20240601
